FAERS Safety Report 10708521 (Version 2)
Quarter: 2015Q1

REPORT INFORMATION
  Report Type: Spontaneous
  Country: JP (occurrence: JP)
  Receive Date: 20150113
  Receipt Date: 20150317
  Transmission Date: 20150721
  Serious: Yes (Other)
  Sender: FDA-Public Use
  Company Number: JP-ROCHE-1520718

PATIENT
  Age: 67 Year
  Sex: Male

DRUGS (1)
  1. ACTIVACIN [Suspect]
     Active Substance: ALTEPLASE
     Indication: INFARCTION
     Route: 042

REACTIONS (1)
  - Fat embolism [Unknown]
